FAERS Safety Report 24767171 (Version 1)
Quarter: 2024Q4

REPORT INFORMATION
  Report Type: Report from Study
  Country: US (occurrence: US)
  Receive Date: 20241223
  Receipt Date: 20241223
  Transmission Date: 20250115
  Serious: Yes (Other)
  Sender: ABBVIE
  Company Number: US-ABBVIE-6031749

PATIENT
  Age: 42 Year
  Sex: Female
  Weight: 67 kg

DRUGS (5)
  1. HUMIRA [Suspect]
     Active Substance: ADALIMUMAB
     Indication: Rheumatoid arthritis
     Dosage: FORM STRENGTH: 40 MG
     Route: 058
     Dates: start: 20170621, end: 202411
  2. HUMIRA [Suspect]
     Active Substance: ADALIMUMAB
     Dosage: FORM STRENGTH: 40 MG
     Route: 058
     Dates: start: 20241127
  3. AMLODIPINE [Concomitant]
     Active Substance: AMLODIPINE BESYLATE
     Indication: Hypertension
  4. FLUTICASONE [Concomitant]
     Active Substance: FLUTICASONE
     Indication: Sinus headache
     Dosage: AS NEEDED
  5. LEVOTHYROXINE [Concomitant]
     Active Substance: LEVOTHYROXINE
     Indication: Thyroid disorder

REACTIONS (6)
  - Uterine leiomyoma [Recovering/Resolving]
  - Procedural pain [Recovering/Resolving]
  - Discomfort [Recovering/Resolving]
  - Bladder discomfort [Recovering/Resolving]
  - Infection [Recovered/Resolved]
  - Sinus headache [Not Recovered/Not Resolved]

NARRATIVE: CASE EVENT DATE: 20180101
